FAERS Safety Report 8106984-2 (Version None)
Quarter: 2012Q1

REPORT INFORMATION
  Report Type: 
  Country: None (occurrence: None)
  Receive Date: 20120202
  Receipt Date: 20120202
  Transmission Date: 20120608
  Serious: Yes (Other)
  Sender: FDA-Public Use
  Company Number: None

PATIENT
  Sex: Female
  Weight: 92 kg

DRUGS (13)
  1. CHLORTHALIDONE [Concomitant]
  2. ARANESP [Concomitant]
  3. WARFARIN SODIUM [Suspect]
     Indication: DEEP VEIN THROMBOSIS
     Dosage: 2.5 MG TO 5 MG
     Route: 048
     Dates: start: 20110830, end: 20111207
  4. AMLODIPINE BESYLATE [Concomitant]
  5. PROFERRIN-FORTE [Concomitant]
  6. EZETIMIBE [Concomitant]
  7. ASPIRIN [Concomitant]
     Route: 048
  8. MIACALCIN [Concomitant]
     Route: 045
  9. LEVOTHYROXINE SODIUM [Concomitant]
  10. ROPINIROLE [Concomitant]
  11. OMEPRAZOLE [Concomitant]
  12. FENOFIBRATE [Concomitant]
  13. CALCIUM [Concomitant]

REACTIONS (1)
  - ALOPECIA [None]
